FAERS Safety Report 8042601-8 (Version None)
Quarter: 2012Q1

REPORT INFORMATION
  Report Type: 
  Country: None (occurrence: None)
  Receive Date: 20120112
  Receipt Date: 20120103
  Transmission Date: 20120608
  Serious: Yes (Hospitalization)
  Sender: FDA-Public Use
  Company Number: DE-UCBSA-047629

PATIENT
  Age: 8 Year
  Sex: Male
  Weight: 21 kg

DRUGS (4)
  1. ZONEGRAN [Concomitant]
     Dates: start: 20111201
  2. VIMPAT [Suspect]
     Indication: EPILEPSY
     Dosage: UP TITRATING DOSE
     Route: 048
     Dates: start: 20111201
  3. LEVETIRACETAM [Concomitant]
  4. VIMPAT [Suspect]
     Route: 048
     Dates: start: 20110301, end: 20111101

REACTIONS (2)
  - URINE COLOUR ABNORMAL [None]
  - INFECTION [None]
